FAERS Safety Report 21057720 (Version 1)
Quarter: 2022Q3

REPORT INFORMATION
  Report Type: Spontaneous
  Country: US (occurrence: US)
  Receive Date: 20220708
  Receipt Date: 20220708
  Transmission Date: 20221027
  Serious: No
  Sender: FDA-Public Use
  Company Number: US-GILEAD-2022-0587501

PATIENT
  Age: 64 Year
  Sex: Female

DRUGS (2)
  1. EPCLUSA [Suspect]
     Active Substance: SOFOSBUVIR\VELPATASVIR
     Indication: Hepatitis C
     Dosage: 1 DOSAGE FORM, QD
     Route: 048
     Dates: start: 202206, end: 20220621
  2. RIBAVIRIN [Suspect]
     Active Substance: RIBAVIRIN
     Indication: Hepatitis C
     Dosage: 600 MG AM AND PM WITH FOOD
     Route: 048
     Dates: start: 202206

REACTIONS (5)
  - Vomiting [Recovered/Resolved]
  - Influenza like illness [Recovered/Resolved]
  - Chills [Unknown]
  - Headache [Unknown]
  - Pain [Unknown]

NARRATIVE: CASE EVENT DATE: 20220601
